FAERS Safety Report 21688330 (Version 1)
Quarter: 2022Q4

REPORT INFORMATION
  Report Type: Spontaneous
  Country: ES (occurrence: ES)
  Receive Date: 20221206
  Receipt Date: 20221206
  Transmission Date: 20230112
  Serious: Yes (Disabling, Other)
  Sender: FDA-Public Use
  Company Number: None

PATIENT
  Age: 69 Year
  Sex: Female
  Weight: 48 kg

DRUGS (1)
  1. PROLIA [Suspect]
     Active Substance: DENOSUMAB
     Indication: Osteoporosis
     Dosage: 60 MG CADA 6 MESES
     Route: 058
     Dates: start: 20200501, end: 20210701

REACTIONS (3)
  - Lumbar vertebral fracture [Recovered/Resolved with Sequelae]
  - Thoracic vertebral fracture [Recovered/Resolved with Sequelae]
  - Rebound effect [Recovered/Resolved with Sequelae]

NARRATIVE: CASE EVENT DATE: 20220801
